FAERS Safety Report 8032962-8 (Version None)
Quarter: 2011Q4

REPORT INFORMATION
  Report Type: 
  Country: None (occurrence: None)
  Receive Date: 20111223
  Receipt Date: 20111209
  Transmission Date: 20120403
  Serious: Yes (Other)
  Sender: FDA-Public Use
  Company Number: ACO_25634_1997

PATIENT
  Age: 49 Year
  Sex: Female

DRUGS (5)
  1. ZANAFLEX [Suspect]
     Indication: MUSCLE SPASTICITY
     Dosage: 4 MG, QD, ORAL; 24 MG, QD, ORAL; 4 MG, ORAL; 2 MG, ORAL
     Route: 048
     Dates: start: 19970210, end: 19970215
  2. ZANAFLEX [Suspect]
     Indication: MUSCLE SPASTICITY
     Dosage: 4 MG, QD, ORAL; 24 MG, QD, ORAL; 4 MG, ORAL; 2 MG, ORAL
     Route: 048
     Dates: start: 19970220
  3. ZANAFLEX [Suspect]
     Indication: MUSCLE SPASTICITY
     Dosage: 4 MG, QD, ORAL; 24 MG, QD, ORAL; 4 MG, ORAL; 2 MG, ORAL
     Route: 048
     Dates: start: 19970217
  4. ZANAFLEX [Suspect]
     Indication: MUSCLE SPASTICITY
     Dosage: 4 MG, QD, ORAL; 24 MG, QD, ORAL; 4 MG, ORAL; 2 MG, ORAL
     Route: 048
     Dates: start: 19970115
  5. INDERAL [Concomitant]

REACTIONS (3)
  - LOSS OF CONSCIOUSNESS [None]
  - BLOOD PRESSURE INCREASED [None]
  - HYPOTENSION [None]
